FAERS Safety Report 12540588 (Version 1)
Quarter: 2016Q3

REPORT INFORMATION
  Report Type: Spontaneous
  Country: US (occurrence: US)
  Receive Date: 20160708
  Receipt Date: 20160708
  Transmission Date: 20161109
  Serious: No
  Sender: FDA-Public Use
  Company Number: US-TEVA-650706USA

PATIENT
  Age: 21 Year
  Sex: Female
  Weight: 61.29 kg

DRUGS (8)
  1. BACLOFEN. [Concomitant]
     Active Substance: BACLOFEN
  2. OMEGA-3 ACIDS [Concomitant]
     Active Substance: OMEGA-3 FATTY ACIDS
  3. FIORICET [Concomitant]
     Active Substance: ACETAMINOPHEN\BUTALBITAL\CAFFEINE
  4. MULTI-VITAMIN [Concomitant]
     Active Substance: .ALPHA.-TOCOPHEROL ACETATE, DL-\ASCORBIC ACID\CYANOCOBALAMIN\FLUORIDE ION\FOLIC ACID\NIACIN\PYRIDOXINE\RIBOFLAVIN\THIAMINE\VITAMIN A\VITAMIN D
  5. SUMATRIPTAN. [Concomitant]
     Active Substance: SUMATRIPTAN
  6. CALCIUM WITH VITAMIN D [Concomitant]
     Active Substance: CALCIUM\VITAMIN D
  7. ROBAXIN [Concomitant]
     Active Substance: METHOCARBAMOL
  8. ZECUITY [Suspect]
     Active Substance: SUMATRIPTAN SUCCINATE
     Indication: MIGRAINE
     Route: 062

REACTIONS (2)
  - Application site paraesthesia [Recovered/Resolved]
  - Application site erythema [Recovered/Resolved]

NARRATIVE: CASE EVENT DATE: 201602
